FAERS Safety Report 10970430 (Version 2)
Quarter: 2016Q1

REPORT INFORMATION
  Report Type: Spontaneous
  Country: IT (occurrence: IT)
  Receive Date: 20150331
  Receipt Date: 20160128
  Transmission Date: 20160525
  Serious: Yes (Hospitalization)
  Sender: FDA-Public Use
  Company Number: IT-ASTRAZENECA-2015SE28227

PATIENT
  Age: 29828 Day
  Sex: Male

DRUGS (15)
  1. TOTALIP [Concomitant]
     Active Substance: ATORVASTATIN
  2. LYRICA [Suspect]
     Active Substance: PREGABALIN
     Route: 048
     Dates: start: 20110101, end: 20150106
  3. SEROQUEL [Suspect]
     Active Substance: QUETIAPINE FUMARATE
     Indication: PSYCHOMOTOR HYPERACTIVITY
     Route: 048
     Dates: start: 20110101, end: 20150106
  4. ESOPRAL [Concomitant]
     Active Substance: ESOMEPRAZOLE MAGNESIUM
     Route: 048
  5. LASIX [Concomitant]
     Active Substance: FUROSEMIDE
     Route: 048
  6. FLUIFORT [Concomitant]
  7. LUVION [Concomitant]
     Active Substance: CANRENONE
  8. SEROQUEL [Suspect]
     Active Substance: QUETIAPINE FUMARATE
     Indication: PSYCHOMOTOR HYPERACTIVITY
     Route: 048
  9. EN [Suspect]
     Active Substance: DELORAZEPAM
     Dosage: 1 MG/ML, 8 GTT DAILY
     Route: 048
     Dates: start: 20110101, end: 20150106
  10. CLEXANE [Concomitant]
     Active Substance: ENOXAPARIN SODIUM
  11. MOVICOL [Concomitant]
     Active Substance: POLYETHYLENE GLYCOL 3350\POTASSIUM CHLORIDE\SODIUM BICARBONATE\SODIUM CHLORIDE
  12. CADIOASPIRIN [Concomitant]
  13. HUMALOG [Concomitant]
     Active Substance: INSULIN LISPRO
  14. VISTAGAN [Concomitant]
     Dosage: 5 MG/ML, EYEWASH
  15. CONTRAMAL [Concomitant]
     Active Substance: TRAMADOL HYDROCHLORIDE
     Dosage: 100 MG/ML
     Route: 048

REACTIONS (5)
  - Sopor [Recovered/Resolved]
  - Altered state of consciousness [Recovered/Resolved]
  - Off label use [Unknown]
  - Dehydration [Recovered/Resolved]
  - Product use issue [Unknown]

NARRATIVE: CASE EVENT DATE: 20110101
